FAERS Safety Report 20510872 (Version 2)
Quarter: 2022Q1

REPORT INFORMATION
  Report Type: Spontaneous
  Country: US (occurrence: US)
  Receive Date: 20220224
  Receipt Date: 20220314
  Transmission Date: 20220423
  Serious: Yes (Other)
  Sender: FDA-Public Use
  Company Number: US-TEVA-2022-US-2009230

PATIENT
  Age: 81 Year
  Sex: Female

DRUGS (7)
  1. DEXAMETHASONE [Suspect]
     Active Substance: DEXAMETHASONE
     Indication: Osteolysis
     Dosage: 20 MG, RECEIVED A TOTAL OF SIX CYCLES IN A SINGLE CYCLE OF 21DAYS. AFTER CYCLE 4 OF CHEMOIMMUNOTHERA
     Route: 042
  2. DEXAMETHASONE [Suspect]
     Active Substance: DEXAMETHASONE
     Indication: Lymphoplasmacytoid lymphoma/immunocytoma
  3. RITUXIMAB [Suspect]
     Active Substance: RITUXIMAB
     Indication: Osteolysis
     Dosage: 375 MG/M2, RECEIVED A TOTAL OF SIX CYCLES IN A SINGLE CYCLE OF 21DAYS. AFTER CYCLE 4 OF CHEMOIMMUNOT
     Route: 042
  4. RITUXIMAB [Suspect]
     Active Substance: RITUXIMAB
     Indication: Lymphoplasmacytoid lymphoma/immunocytoma
  5. CYCLOPHOSPHAMIDE [Suspect]
     Active Substance: CYCLOPHOSPHAMIDE
     Indication: Osteolysis
     Dosage: 300 MG/M2, RECEIVED A TOTAL OF SIX CYCLES IN A SINGLE CYCLE OF 21DAYS. AFTER CYCLE 4 OF CHEMOIMMUNOT
     Route: 042
  6. CYCLOPHOSPHAMIDE [Suspect]
     Active Substance: CYCLOPHOSPHAMIDE
     Indication: Lymphoplasmacytoid lymphoma/immunocytoma
  7. DENOSUMAB [Concomitant]
     Active Substance: DENOSUMAB
     Indication: Osteoporosis
     Route: 065

REACTIONS (4)
  - Neutropenia [Unknown]
  - Anaemia [Unknown]
  - Urinary tract infection [Unknown]
  - Oral herpes [Unknown]
